FAERS Safety Report 18858478 (Version 1)
Quarter: 2021Q1

REPORT INFORMATION
  Report Type: Spontaneous
  Country: US (occurrence: US)
  Receive Date: 20210205
  Receipt Date: 20210205
  Transmission Date: 20210420
  Serious: No
  Sender: FDA-Public Use
  Company Number: None

PATIENT
  Age: 62 Year
  Sex: Female
  Weight: 48.15 kg

DRUGS (4)
  1. VALTREX [Concomitant]
     Active Substance: VALACYCLOVIR HYDROCHLORIDE
  2. HAIR SKIN NAILS VITAMIN COSTCO [Concomitant]
  3. LYSENE [Concomitant]
  4. EMGALITY [Suspect]
     Active Substance: GALCANEZUMAB-GNLM
     Indication: MIGRAINE
     Dosage: ?          QUANTITY:1 INJECTION(S);?
     Route: 030
     Dates: start: 20201127

REACTIONS (2)
  - Alopecia [None]
  - Weight increased [None]

NARRATIVE: CASE EVENT DATE: 20201127
